FAERS Safety Report 4612978-1 (Version None)
Quarter: 2005Q1

REPORT INFORMATION
  Report Type: 
  Country: None (occurrence: None)
  Receive Date: 20050318
  Receipt Date: 20050311
  Transmission Date: 20050727
  Serious: Yes (Hospitalization)
  Sender: FDA-Public Use
  Company Number: US-BRISTOL-MYERS SQUIBB COMPANY-12895553

PATIENT
  Age: 46 Year
  Sex: Male

DRUGS (4)
  1. CETUXIMAB [Suspect]
     Indication: OESOPHAGEAL CARCINOMA
     Route: 042
     Dates: start: 20050104, end: 20050104
  2. CISPLATIN [Suspect]
     Indication: OESOPHAGEAL CARCINOMA
     Route: 042
     Dates: start: 20041214, end: 20041214
  3. IRINOTECAN HCL [Suspect]
     Indication: OESOPHAGEAL CARCINOMA
     Route: 042
     Dates: start: 20041114, end: 20041214
  4. RADIATION THERAPY [Suspect]
     Indication: OESOPHAGEAL CARCINOMA
     Dosage: 50.4GY DAY1-28
     Dates: start: 20041223, end: 20041223

REACTIONS (16)
  - ANXIETY [None]
  - ARTHRALGIA [None]
  - ATRIAL FIBRILLATION [None]
  - BLOOD PRESSURE ABNORMAL [None]
  - CANDIDIASIS [None]
  - CLAUSTROPHOBIA [None]
  - HYPOXIA [None]
  - INCISION SITE COMPLICATION [None]
  - LUNG INJURY [None]
  - PANIC ATTACK [None]
  - PNEUMOTHORAX [None]
  - POSTOPERATIVE RESPIRATORY DISTRESS [None]
  - RADIATION PERICARDITIS [None]
  - RADIATION PNEUMONITIS [None]
  - SPUTUM CULTURE [None]
  - SPUTUM CULTURE POSITIVE [None]
